FAERS Safety Report 23686420 (Version 5)
Quarter: 2025Q1

REPORT INFORMATION
  Report Type: Spontaneous
  Country: US (occurrence: US)
  Receive Date: 20240329
  Receipt Date: 20250204
  Transmission Date: 20250408
  Serious: Yes (Other)
  Sender: BIOVITRUM
  Company Number: US-BIOVITRUM-2024-US-004934

PATIENT
  Age: 62 Year
  Sex: Female

DRUGS (2)
  1. VONJO [Suspect]
     Active Substance: PACRITINIB
     Indication: Myelofibrosis
     Route: 048
     Dates: start: 20230615
  2. VONJO [Suspect]
     Active Substance: PACRITINIB
     Route: 048

REACTIONS (6)
  - Hypoxia [Unknown]
  - Diarrhoea [Unknown]
  - Product dose omission issue [Unknown]
  - Malaise [Unknown]
  - Off label use [Not Recovered/Not Resolved]
  - Intentional dose omission [Unknown]

NARRATIVE: CASE EVENT DATE: 20230615
